FAERS Safety Report 14418051 (Version 1)
Quarter: 2018Q1

REPORT INFORMATION
  Report Type: Spontaneous
  Country: US (occurrence: US)
  Receive Date: 20180119
  Receipt Date: 20180119
  Transmission Date: 20180509
  Serious: Yes (Life-Threatening)
  Sender: FDA-Public Use
  Company Number: None

PATIENT
  Age: 37 Year
  Sex: Female
  Weight: 107.1 kg

DRUGS (4)
  1. AMBIEN [Concomitant]
     Active Substance: ZOLPIDEM TARTRATE
  2. ADDERALL [Concomitant]
     Active Substance: AMPHETAMINE ASPARTATE\AMPHETAMINE SULFATE\DEXTROAMPHETAMINE SACCHARATE\DEXTROAMPHETAMINE SULFATE
  3. PRAZOSIN HCL [Suspect]
     Active Substance: PRAZOSIN HYDROCHLORIDE
     Indication: POST-TRAUMATIC STRESS DISORDER
     Dosage: ?          QUANTITY:1 CAPSULE(S);?
     Route: 048
     Dates: start: 20180117, end: 20180117
  4. IBUPROFEN. [Concomitant]
     Active Substance: IBUPROFEN

REACTIONS (14)
  - Confusional state [None]
  - Cyanosis [None]
  - Diarrhoea [None]
  - Asthenia [None]
  - Visual impairment [None]
  - Blood pressure decreased [None]
  - Feeling abnormal [None]
  - Body temperature decreased [None]
  - Nausea [None]
  - Pallor [None]
  - Hyperhidrosis [None]
  - Feeling cold [None]
  - Sensory disturbance [None]
  - Shock [None]

NARRATIVE: CASE EVENT DATE: 20180117
